FAERS Safety Report 12860865 (Version 1)
Quarter: 2016Q4

REPORT INFORMATION
  Report Type: Spontaneous
  Country: US (occurrence: US)
  Receive Date: 20161019
  Receipt Date: 20161019
  Transmission Date: 20170207
  Serious: No
  Sender: FDA-Public Use
  Company Number: US-BAYER-2016-192546

PATIENT
  Age: 55 Year

DRUGS (2)
  1. ESTROGEN [Concomitant]
     Active Substance: ESTRONE\SUS SCROFA OVARY
  2. CLIMARA [Suspect]
     Active Substance: ESTRADIOL
     Indication: TRANSGENDER HORMONAL THERAPY
     Dosage: 0.1 MILLIGRAM
     Route: 062
     Dates: start: 20160927, end: 20161002

REACTIONS (5)
  - Off label use [Not Recovered/Not Resolved]
  - Application site vesicles [Not Recovered/Not Resolved]
  - Off label use [None]
  - Product use issue [None]
  - Product use issue [None]

NARRATIVE: CASE EVENT DATE: 20160927
